FAERS Safety Report 4498931-X (Version None)
Quarter: 2004Q4

REPORT INFORMATION
  Report Type: 
  Country: None (occurrence: None)
  Receive Date: 20041111
  Receipt Date: 20040922
  Transmission Date: 20050328
  Serious: Yes (Death, Hospitalization, Other)
  Sender: FDA-Public Use
  Company Number: ES-BRISTOL-MYERS SQUIBB COMPANY-12710851

PATIENT
  Age: 65 Year
  Sex: Male

DRUGS (8)
  1. TAXOL [Suspect]
     Indication: TONGUE NEOPLASM MALIGNANT STAGE UNSPECIFIED
     Dosage: 175 MG/M2; INFUSION 3 HOURS THERAPY DATES: 24-MAY TO 01-SEP-2004
     Route: 042
     Dates: start: 20040901, end: 20040901
  2. PLATISTIL [Concomitant]
     Dosage: 100 MG/M2, INFUSION RATE 1 HOUR THERAPY COMMENCED: 24-MAY-2004
     Route: 042
     Dates: start: 20040901, end: 20040901
  3. FLUOROURACIL [Concomitant]
     Dosage: THERAPY COMMENCED: 24-MAY-2004
  4. RADIATION THERAPY [Concomitant]
     Dates: start: 20040809, end: 20040901
  5. DEXAMETHASONE [Concomitant]
     Indication: PREMEDICATION
     Route: 042
  6. NAVOBAN [Concomitant]
     Indication: PREMEDICATION
     Route: 042
  7. POLARAMINE [Concomitant]
     Indication: PREMEDICATION
  8. ZANTAC [Concomitant]
     Indication: PREMEDICATION

REACTIONS (8)
  - ASTHENIA [None]
  - GASTROINTESTINAL HAEMORRHAGE [None]
  - HAEMATOCRIT DECREASED [None]
  - HAEMOGLOBIN DECREASED [None]
  - HEPATIC FAILURE [None]
  - LEUKOPENIA [None]
  - PROTHROMBIN TIME SHORTENED [None]
  - THROMBOCYTOPENIA [None]
